FAERS Safety Report 10646261 (Version 1)
Quarter: 2014Q4

REPORT INFORMATION
  Report Type: Spontaneous
  Country: US (occurrence: US)
  Receive Date: 20141211
  Receipt Date: 20141211
  Transmission Date: 20150529
  Serious: No
  Sender: FDA-Public Use
  Company Number: US-TEVA-528178USA

PATIENT
  Age: 28 Year
  Sex: Female
  Weight: 62.65 kg

DRUGS (2)
  1. PROGESTERONE. [Concomitant]
     Active Substance: PROGESTERONE
     Indication: MENSTRUAL CYCLE MANAGEMENT
     Dates: start: 20141027
  2. PARAGARD T380A [Suspect]
     Active Substance: COPPER
     Indication: CONTRACEPTION
     Route: 015
     Dates: start: 20141027, end: 20141208

REACTIONS (3)
  - Menstruation delayed [Not Recovered/Not Resolved]
  - Vaginal discharge [Unknown]
  - Device expulsion [Recovered/Resolved]

NARRATIVE: CASE EVENT DATE: 20141027
